FAERS Safety Report 25392823 (Version 1)
Quarter: 2025Q2

REPORT INFORMATION
  Report Type: Report from Study
  Country: US (occurrence: US)
  Receive Date: 20250603
  Receipt Date: 20250603
  Transmission Date: 20250717
  Serious: No
  Sender: MALLINCKRODT
  Company Number: US-MALLINCKRODT-MNK202502694

PATIENT
  Sex: Female
  Weight: 23 kg

DRUGS (3)
  1. CORTICOTROPIN [Suspect]
     Active Substance: CORTICOTROPIN
     Indication: Infantile spasms
     Route: 030
  2. CORTICOTROPIN [Suspect]
     Active Substance: CORTICOTROPIN
     Indication: Oral candidiasis
     Route: 030
  3. CLOBAZAM [Concomitant]
     Active Substance: CLOBAZAM
     Indication: Infantile spasms

REACTIONS (8)
  - Somnolence [Not Recovered/Not Resolved]
  - Inflammation [Unknown]
  - Nausea [Unknown]
  - Constipation [Unknown]
  - Fatigue [Unknown]
  - Injection site pain [Unknown]
  - Injection site bruising [Not Recovered/Not Resolved]
  - Therapy non-responder [Unknown]
